FAERS Safety Report 22537830 (Version 1)
Quarter: 2023Q2

REPORT INFORMATION
  Report Type: Other
  Country: CN (occurrence: CN)
  Receive Date: 20230608
  Receipt Date: 20230608
  Transmission Date: 20230721
  Serious: Yes (Other)
  Sender: FDA-Public Use
  Company Number: CN-GE HEALTHCARE-2023CSU004493

PATIENT
  Age: 54 Year
  Sex: Male
  Weight: 79 kg

DRUGS (3)
  1. OMNIPAQUE [Suspect]
     Active Substance: IOHEXOL
     Indication: Diagnostic procedure
     Dosage: 100 ML, SINGLE
     Route: 041
     Dates: start: 20230529, end: 20230529
  2. OMNIPAQUE [Suspect]
     Active Substance: IOHEXOL
     Indication: Coronary artery disease
  3. SODIUM CHLORIDE [Concomitant]
     Active Substance: SODIUM CHLORIDE
     Indication: Diagnostic procedure
     Dosage: 250 ML, QD
     Route: 041
     Dates: start: 20230529, end: 20230529

REACTIONS (2)
  - Amaurosis fugax [Recovered/Resolved]
  - Vision blurred [Recovered/Resolved]

NARRATIVE: CASE EVENT DATE: 20230529
